FAERS Safety Report 11021166 (Version 2)
Quarter: 2015Q2

REPORT INFORMATION
  Report Type: Spontaneous
  Country: VN (occurrence: VN)
  Receive Date: 20150413
  Receipt Date: 20150417
  Transmission Date: 20150821
  Serious: Yes (Other)
  Sender: FDA-Public Use
  Company Number: VN-ROCHE-1559955

PATIENT
  Age: 29 Year
  Sex: Female

DRUGS (3)
  1. THYROXINE [Concomitant]
     Active Substance: LEVOTHYROXINE
     Indication: HYPERTHYROIDISM
  2. OSELTAMIVIR [Suspect]
     Active Substance: OSELTAMIVIR
     Indication: PNEUMONIA
     Route: 065
  3. IMIPENEM [Suspect]
     Active Substance: IMIPENEM
     Indication: PNEUMONIA
     Route: 065
     Dates: start: 201404

REACTIONS (2)
  - Exposure during pregnancy [Unknown]
  - Respiratory disorder [Recovered/Resolved]
